FAERS Safety Report 7233447-9 (Version None)
Quarter: 2011Q1

REPORT INFORMATION
  Report Type: 
  Country: None (occurrence: None)
  Receive Date: 20110119
  Receipt Date: 20110106
  Transmission Date: 20110831
  Serious: Yes (Hospitalization)
  Sender: FDA-Public Use
  Company Number: US-CELGENEUS-163-21880-10112730

PATIENT
  Sex: Male

DRUGS (9)
  1. OXYCODONE [Concomitant]
     Indication: BACK PAIN
     Dosage: 5-10MG
     Route: 065
  2. AMBIEN [Concomitant]
     Indication: INSOMNIA
     Route: 048
  3. SEPTRA [Concomitant]
     Dosage: 80/400
     Route: 048
  4. ACYCLOVIR [Concomitant]
     Route: 048
  5. ZOMETA [Concomitant]
     Indication: MULTIPLE MYELOMA
     Route: 065
  6. BACTRIM DS [Concomitant]
     Route: 065
  7. ALLOPURINOL [Concomitant]
     Indication: GOUT
     Route: 048
  8. DEXAMETHASONE [Concomitant]
     Indication: MULTIPLE MYELOMA
     Route: 048
     Dates: start: 20101115
  9. REVLIMID [Suspect]
     Indication: MULTIPLE MYELOMA
     Route: 048
     Dates: start: 20101115

REACTIONS (3)
  - CATHETER SITE HAEMORRHAGE [None]
  - MENTAL STATUS CHANGES [None]
  - HEADACHE [None]
